FAERS Safety Report 24339249 (Version 3)
Quarter: 2024Q4

REPORT INFORMATION
  Report Type: Spontaneous
  Country: JP (occurrence: JP)
  Receive Date: 20240919
  Receipt Date: 20241029
  Transmission Date: 20250114
  Serious: Yes (Hospitalization, Other)
  Sender: PFIZER
  Company Number: JP-PFIZER INC-PV202400111584

PATIENT
  Age: 73 Year
  Sex: Female
  Weight: 40.1 kg

DRUGS (7)
  1. ELREXFIO [Suspect]
     Active Substance: ELRANATAMAB-BCMM
     Indication: Plasma cell myeloma
     Dosage: 12 MG
     Route: 058
     Dates: start: 20240822
  2. ELREXFIO [Suspect]
     Active Substance: ELRANATAMAB-BCMM
     Dosage: 32 MG
     Route: 058
     Dates: start: 20240827
  3. AMLODIPINE [Concomitant]
     Active Substance: AMLODIPINE BESYLATE
     Indication: Hypertension
     Dosage: 2.5 MG, DAILY AFTER THE BREAKFAST
  4. ACYCLOVIR [Concomitant]
     Active Substance: ACYCLOVIR
     Indication: Infection prophylaxis
     Dosage: 200 MG, DAILY AFTER THE BREAKFAST
  5. CALONAL [Concomitant]
     Active Substance: ACETAMINOPHEN
     Dosage: 1000 MG, ONCE A DAY, ON THE ELRANATAMAB ADMINISTRATION DAY
  6. LENADEX [Concomitant]
     Active Substance: DEXAMETHASONE ACETATE
     Dosage: 20 MG, ONCE A DAY, ON THE ELRANATAMAB ADMINISTRATION DAY
  7. RESTAMINE [Concomitant]
     Dosage: 50 MG, ONCE A DAY, ON THE ELRANATAMAB ADMINISTRATION DAY

REACTIONS (2)
  - Cytokine release syndrome [Recovered/Resolved]
  - Disorientation [Recovered/Resolved]

NARRATIVE: CASE EVENT DATE: 20240823
